FAERS Safety Report 24704645 (Version 1)
Quarter: 2024Q4

REPORT INFORMATION
  Report Type: Spontaneous
  Country: US (occurrence: US)
  Receive Date: 20241206
  Receipt Date: 20241206
  Transmission Date: 20250114
  Serious: Yes (Hospitalization)
  Sender: TENSHI KAIZEN PRIVATE LIMITED
  Company Number: US-TENSHI KAIZEN PRIVATE LIMITED-2024TK000099

PATIENT
  Age: 54 Year
  Sex: Female

DRUGS (25)
  1. LORATADINE [Suspect]
     Active Substance: LORATADINE
     Indication: Anaphylactic reaction
     Dosage: 20 MILLIGRAM, BID
     Route: 065
  2. LORATADINE [Suspect]
     Active Substance: LORATADINE
     Indication: Cytokine release syndrome
  3. DEXAMETHASONE [Suspect]
     Active Substance: DEXAMETHASONE
     Indication: Anaphylactic reaction
     Dosage: 10 MILLIGRAM, EVERY 6 HRS
     Route: 065
  4. DEXAMETHASONE [Suspect]
     Active Substance: DEXAMETHASONE
     Indication: Cytokine release syndrome
  5. EPINEPHRINE [Suspect]
     Active Substance: EPINEPHRINE
     Indication: Anaphylactic reaction
     Dosage: DRIP
     Route: 065
  6. EPINEPHRINE [Suspect]
     Active Substance: EPINEPHRINE
     Indication: Cytokine release syndrome
  7. FAMOTIDINE [Suspect]
     Active Substance: FAMOTIDINE
     Indication: Anaphylactic reaction
     Dosage: 20 MINUTES BEFORE THE PROCEDURE
     Route: 042
  8. FAMOTIDINE [Suspect]
     Active Substance: FAMOTIDINE
     Indication: Cytokine release syndrome
     Dosage: UNK
     Route: 065
  9. FAMOTIDINE [Suspect]
     Active Substance: FAMOTIDINE
     Indication: Premedication
  10. MONTELUKAST [Suspect]
     Active Substance: MONTELUKAST
     Indication: Anaphylactic reaction
     Dosage: 13 HOURS BEFORE THE PROCEDURE
     Route: 048
  11. MONTELUKAST [Suspect]
     Active Substance: MONTELUKAST
     Indication: Cytokine release syndrome
  12. MONTELUKAST [Suspect]
     Active Substance: MONTELUKAST
     Indication: Premedication
  13. RITUXIMAB [Concomitant]
     Active Substance: RITUXIMAB
     Indication: B-cell lymphoma
     Dosage: UNK
     Route: 065
  14. PREDNISONE [Concomitant]
     Active Substance: PREDNISONE
     Indication: Premedication
     Dosage: 13 HOURS, 7 HOURS, AND 1 HOUR BEFORE THE PROCEDURE
     Route: 048
  15. ASPIRIN [Concomitant]
     Active Substance: ASPIRIN
     Indication: Premedication
     Dosage: 1 HOUR BEFORE THE PROCEDURE
     Route: 048
  16. DIPHENHYDRAMINE [Concomitant]
     Active Substance: DIPHENHYDRAMINE
     Indication: Premedication
     Dosage: 20 MINUTES BEFORE THE PROCEDURE
     Route: 042
  17. DIPHENHYDRAMINE [Concomitant]
     Active Substance: DIPHENHYDRAMINE
     Indication: Palmar erythema
  18. DIPHENHYDRAMINE [Concomitant]
     Active Substance: DIPHENHYDRAMINE
     Indication: Syncope
  19. ONDANSETRON [Concomitant]
     Active Substance: ONDANSETRON
     Indication: Premedication
     Dosage: 4 MILLIGRAM
     Route: 042
  20. ACETAMINOPHEN [Concomitant]
     Active Substance: ACETAMINOPHEN
     Indication: Premedication
     Dosage: 325 MILLIGRAM
     Route: 065
  21. ACETAMINOPHEN [Concomitant]
     Active Substance: ACETAMINOPHEN
     Indication: Fatigue
  22. ACETAMINOPHEN [Concomitant]
     Active Substance: ACETAMINOPHEN
     Indication: Arthralgia
  23. METHOCARBAMOL [Concomitant]
     Active Substance: METHOCARBAMOL
     Indication: Cytokine release syndrome
     Dosage: 750 MILLIGRAM
     Route: 065
  24. BENDAMUSTINE [Concomitant]
     Active Substance: BENDAMUSTINE
     Indication: B-cell lymphoma
     Dosage: UNK
     Route: 065
  25. OBINUTUZUMAB [Concomitant]
     Active Substance: OBINUTUZUMAB
     Indication: B-cell lymphoma
     Dosage: UNK
     Route: 065

REACTIONS (1)
  - Drug ineffective for unapproved indication [Unknown]
